FAERS Safety Report 4618618-X (Version None)
Quarter: 2005Q1

REPORT INFORMATION
  Report Type: 
  Country: None (occurrence: None)
  Receive Date: 20050323
  Receipt Date: 20050311
  Transmission Date: 20050727
  Serious: Yes (Hospitalization)
  Sender: FDA-Public Use
  Company Number: MK200503-0171-1

PATIENT
  Age: 72 Year
  Sex: Female

DRUGS (5)
  1. TOFRANIL [Suspect]
     Indication: DEPRESSION
     Dosage: 75 MG, Q HS, PO
     Route: 048
     Dates: start: 20050209, end: 20050217
  2. BACLOFEN [Concomitant]
  3. ATROVENT [Concomitant]
  4. SYNTHROID [Concomitant]
  5. NEXIUM [Concomitant]

REACTIONS (3)
  - ELECTROLYTE IMBALANCE [None]
  - FAECALOMA [None]
  - HYPONATRAEMIA [None]
